FAERS Safety Report 12870837 (Version 2)
Quarter: 2017Q1

REPORT INFORMATION
  Report Type: Report from Study
  Country: US (occurrence: US)
  Receive Date: 20161020
  Receipt Date: 20170124
  Transmission Date: 20170428
  Serious: No
  Sender: FDA-Public Use
  Company Number: US-AMGEN-USASL2016138989

PATIENT
  Age: 69 Year
  Sex: Male

DRUGS (1)
  1. REPATHA [Suspect]
     Active Substance: EVOLOCUMAB
     Indication: TYPE IIA HYPERLIPIDAEMIA
     Dosage: 140 MG, Q2WK
     Route: 058

REACTIONS (7)
  - Fatigue [Unknown]
  - Drug dose omission [Unknown]
  - Nausea [Unknown]
  - Asthenia [Unknown]
  - Balance disorder [Unknown]
  - Influenza like illness [Unknown]
  - Nasopharyngitis [Unknown]
